FAERS Safety Report 7307884-8 (Version None)
Quarter: 2011Q1

REPORT INFORMATION
  Report Type: 
  Country: None (occurrence: None)
  Receive Date: 20110223
  Receipt Date: 20110211
  Transmission Date: 20110831
  Serious: Yes (Hospitalization)
  Sender: FDA-Public Use
  Company Number: US-ELI_LILLY_AND_COMPANY-US201102003694

PATIENT
  Sex: Male
  Weight: 94.331 kg

DRUGS (15)
  1. AMITIZA [Concomitant]
     Indication: CONSTIPATION
     Dosage: 24 MG, UNKNOWN
  2. MAGNESIUM OXIDE [Concomitant]
     Indication: PRODUCT USED FOR UNKNOWN INDICATION
     Dosage: 420 MG, 2/D
     Route: 048
  3. CRESTOR [Concomitant]
     Indication: PRODUCT USED FOR UNKNOWN INDICATION
     Dosage: 10 MG, DAILY (1/D)
     Route: 048
  4. RANITIDINE [Concomitant]
     Indication: PRODUCT USED FOR UNKNOWN INDICATION
     Dosage: 150 MG, DAILY (1/D)
     Route: 048
  5. PRILOSEC [Concomitant]
     Indication: PRODUCT USED FOR UNKNOWN INDICATION
     Dosage: 20 MG, 2/D
     Route: 048
  6. DILTIAZEM [Concomitant]
     Indication: PRODUCT USED FOR UNKNOWN INDICATION
     Dosage: 240 MG, DAILY (1/D)
     Route: 048
  7. BYETTA [Suspect]
     Indication: TYPE 2 DIABETES MELLITUS
     Dosage: 10 UG, 2/D
     Route: 058
  8. LISINOPRIL [Concomitant]
     Indication: PRODUCT USED FOR UNKNOWN INDICATION
     Dosage: 5 MG, DAILY (1/D)
     Route: 048
  9. ASPIRIN [Concomitant]
     Indication: PRODUCT USED FOR UNKNOWN INDICATION
     Dosage: 81 MG, DAILY (1/D)
     Route: 048
  10. WARFARIN SODIUM [Concomitant]
     Indication: PRODUCT USED FOR UNKNOWN INDICATION
     Dosage: 7 MG, DAILY (1/D)
     Route: 048
  11. METFORMIN [Concomitant]
     Indication: TYPE 2 DIABETES MELLITUS
     Dosage: 500 MG, 3/D
     Route: 048
  12. BYETTA [Suspect]
     Dosage: 5 UG, 2/D
     Route: 058
  13. LANTUS [Concomitant]
     Indication: TYPE 2 DIABETES MELLITUS
     Dosage: 30 U, EACH EVENING
     Route: 058
  14. IMIPRAMINE [Concomitant]
     Indication: PRODUCT USED FOR UNKNOWN INDICATION
     Dosage: 25 MG, DAILY (1/D)
  15. VITAMIN D [Concomitant]
     Indication: PRODUCT USED FOR UNKNOWN INDICATION
     Dosage: UNK, DAILY (1/D)
     Route: 048

REACTIONS (11)
  - ABDOMINAL PAIN [None]
  - DECREASED APPETITE [None]
  - OFF LABEL USE [None]
  - OEDEMA PERIPHERAL [None]
  - NAUSEA [None]
  - EPIDURAL ANAESTHESIA [None]
  - GINGIVAL BLISTER [None]
  - POLLAKIURIA [None]
  - WEIGHT DECREASED [None]
  - CONSTIPATION [None]
  - ABDOMINAL PAIN UPPER [None]
